FAERS Safety Report 12429850 (Version 1)
Quarter: 2016Q2

REPORT INFORMATION
  Report Type: Spontaneous
  Country: US (occurrence: US)
  Receive Date: 20160602
  Receipt Date: 20160602
  Transmission Date: 20160815
  Serious: No
  Sender: FDA-Public Use
  Company Number: US-NOVELLABS-2015-US-000064

PATIENT
  Age: 49 Year
  Sex: Male
  Weight: 94.35 kg

DRUGS (1)
  1. TEMAZEPAM. [Suspect]
     Active Substance: TEMAZEPAM
     Dosage: 1 CAPSULE, AT BEDTIME,
     Route: 048
     Dates: start: 20150721

REACTIONS (2)
  - Insomnia [Recovered/Resolved]
  - Depression [Recovered/Resolved]

NARRATIVE: CASE EVENT DATE: 20151010
